FAERS Safety Report 8004475-0 (Version None)
Quarter: 2011Q4

REPORT INFORMATION
  Report Type: 
  Country: None (occurrence: None)
  Receive Date: 20111221
  Receipt Date: 20111129
  Transmission Date: 20120403
  Serious: Yes (Hospitalization)
  Sender: FDA-Public Use
  Company Number: 001030862A

PATIENT
  Age: 15 Year
  Sex: Female

DRUGS (1)
  1. VITACLEAR (DAILY MULTIVITAMIN) [Suspect]
     Indication: VITAMIN SUPPLEMENTATION
     Dosage: DAILY, ORALLY
     Route: 048

REACTIONS (1)
  - ANAPHYLACTIC SHOCK [None]
